FAERS Safety Report 15578939 (Version 1)
Quarter: 2018Q4

REPORT INFORMATION
  Report Type: Spontaneous
  Country: BR (occurrence: BR)
  Receive Date: 20181102
  Receipt Date: 20181102
  Transmission Date: 20190205
  Serious: Yes (Other)
  Sender: FDA-Public Use
  Company Number: BR-NOVOPROD-629584

PATIENT
  Age: 46 Year
  Sex: Female

DRUGS (2)
  1. SAXENDA [Suspect]
     Active Substance: LIRAGLUTIDE
     Indication: PRODUCT USED FOR UNKNOWN INDICATION
     Dosage: 0.6 MG
     Route: 058
     Dates: start: 201805
  2. SAXENDA [Suspect]
     Active Substance: LIRAGLUTIDE
     Dosage: UNK (INCREASING DOSE)
     Route: 058

REACTIONS (6)
  - Abdominal pain upper [Unknown]
  - Lipase abnormal [Unknown]
  - Vomiting [Unknown]
  - Gamma-glutamyltransferase abnormal [Unknown]
  - Transaminases abnormal [Unknown]
  - Amylase abnormal [Unknown]

NARRATIVE: CASE EVENT DATE: 201809
